FAERS Safety Report 19894038 (Version 1)
Quarter: 2021Q3

REPORT INFORMATION
  Report Type: Spontaneous
  Country: US (occurrence: US)
  Receive Date: 20210928
  Receipt Date: 20210928
  Transmission Date: 20211014
  Serious: No
  Sender: FDA-Public Use
  Company Number: None

PATIENT
  Age: 31 Year
  Sex: Female

DRUGS (1)
  1. LEUPROLIDE ACETATE. [Suspect]
     Active Substance: LEUPROLIDE ACETATE
     Indication: INFERTILITY FEMALE
     Route: 058
     Dates: start: 20210801

REACTIONS (1)
  - Multiple use of single-use product [None]

NARRATIVE: CASE EVENT DATE: 20210801
